FAERS Safety Report 4596879-3 (Version None)
Quarter: 2005Q1

REPORT INFORMATION
  Report Type: 
  Country: None (occurrence: None)
  Receive Date: 20050225
  Receipt Date: 20050217
  Transmission Date: 20050727
  Serious: Yes (Other)
  Sender: FDA-Public Use
  Company Number: 2005-02-1146

PATIENT
  Age: 45 Year
  Sex: Female
  Weight: 50.3493 kg

DRUGS (5)
  1. PEG-INTRON [Suspect]
     Indication: HEPATITIS C
     Dosage: 80 MCG QWK; SUBCUTANEOUS
     Route: 058
     Dates: start: 20040118, end: 20040901
  2. COPEGUS [Suspect]
     Indication: HEPATITIS C
     Dosage: 800-600 MG QD; ORAL
     Route: 048
     Dates: start: 20030513, end: 20040310
  3. EFFEXOR [Concomitant]
  4. NEUPOGEN [Concomitant]
  5. XANAX [Concomitant]

REACTIONS (20)
  - ARTHRALGIA [None]
  - ARTHRITIS [None]
  - BONE PAIN [None]
  - CHOLELITHIASIS [None]
  - ERYTHEMA [None]
  - FATIGUE [None]
  - FIBROMYALGIA [None]
  - HEADACHE [None]
  - HYPOAESTHESIA [None]
  - LEUKOPENIA [None]
  - MOVEMENT DISORDER [None]
  - NAUSEA [None]
  - NERVOUSNESS [None]
  - ONYCHOMADESIS [None]
  - PALLOR [None]
  - PERSONALITY CHANGE [None]
  - RAYNAUD'S PHENOMENON [None]
  - SKIN DISCOLOURATION [None]
  - THERAPY NON-RESPONDER [None]
  - VOMITING [None]
